FAERS Safety Report 8243185 (Version 3)
Quarter: 2014Q2

REPORT INFORMATION
  Report Type: Spontaneous
  Country: AU (occurrence: AU)
  Receive Date: 20111114
  Receipt Date: 20140604
  Transmission Date: 20141212
  Serious: Yes (Other)
  Sender: FDA-Public Use
  Company Number: AU-ALEXION-A201101681

PATIENT
  Sex: 0

DRUGS (4)
  1. SOLIRIS 300MG [Suspect]
     Indication: PAROXYSMAL NOCTURNAL HAEMOGLOBINURIA
     Dosage: 600 MG Q 14 DAYS
     Route: 042
     Dates: start: 20090619
  2. CYCLOSPORINE [Concomitant]
     Dosage: 300 MG BID
  3. CYCLOSPORINE [Concomitant]
     Dosage: 150 MG UNK
  4. PHENOXYMETHYLPENICILLIN [Concomitant]
     Indication: PROPHYLAXIS
     Dosage: 500 MG BID
     Dates: start: 20110306

REACTIONS (2)
  - Meningitis meningococcal [Recovered/Resolved]
  - Rash [Unknown]
